FAERS Safety Report 16234022 (Version 1)
Quarter: 2019Q2

REPORT INFORMATION
  Report Type: Spontaneous
  Country: US (occurrence: US)
  Receive Date: 20190424
  Receipt Date: 20190424
  Transmission Date: 20190711
  Serious: No
  Sender: FDA-Public Use
  Company Number: PHEH2019US017000

PATIENT
  Sex: Male

DRUGS (2)
  1. RECLAST [Suspect]
     Active Substance: ZOLEDRONIC ACID
     Indication: OSTEOPOROSIS
     Dosage: UNK UNK, Q12MO
     Route: 042
  2. VITAMIN D2 [Concomitant]
     Active Substance: ERGOCALCIFEROL
     Indication: PRODUCT USED FOR UNKNOWN INDICATION
     Route: 065

REACTIONS (8)
  - Bowel movement irregularity [Unknown]
  - Neck pain [Unknown]
  - Eye pain [Unknown]
  - Asthenia [Unknown]
  - Feeling abnormal [Unknown]
  - Night sweats [Unknown]
  - Headache [Unknown]
  - Influenza like illness [Unknown]
